FAERS Safety Report 8180253-7 (Version None)
Quarter: 2012Q1

REPORT INFORMATION
  Report Type: 
  Country: None (occurrence: None)
  Receive Date: 20120302
  Receipt Date: 20110225
  Transmission Date: 20120608
  Serious: No
  Sender: FDA-Public Use
  Company Number: US-GLAXOSMITHKLINE-A0915397A

PATIENT
  Age: 66 Year
  Sex: Female

DRUGS (7)
  1. LOTREL [Concomitant]
  2. BLOOD PRESSURE MEDICATION [Concomitant]
     Indication: HYPERTENSION
  3. UNKNOWN MEDICATION [Concomitant]
     Indication: BLOOD CHOLESTEROL INCREASED
  4. ZOCOR [Concomitant]
  5. ATENOLOL [Concomitant]
  6. CLOBETASOL PROPIONATE [Suspect]
     Indication: RASH
     Dosage: 1APP TWICE PER DAY
     Route: 061
     Dates: start: 20101025, end: 20101101
  7. ACTONEL [Concomitant]

REACTIONS (1)
  - DRUG INEFFECTIVE [None]
